FAERS Safety Report 11168050 (Version 2)
Quarter: 2015Q2

REPORT INFORMATION
  Report Type: Spontaneous
  Country: CH (occurrence: AU)
  Receive Date: 20150605
  Receipt Date: 20150624
  Transmission Date: 20150821
  Serious: Yes (Other)
  Sender: FDA-Public Use
  Company Number: CH-LPDUSPRD-20150380

PATIENT
  Sex: Female

DRUGS (1)
  1. FERINJECT [Suspect]
     Active Substance: FERRIC CARBOXYMALTOSE
     Dosage: 1 IN 1 TOTAL
     Route: 042
     Dates: start: 20150401

REACTIONS (8)
  - Liver disorder [Unknown]
  - Hepatic cancer [Unknown]
  - Hepatic enzyme abnormal [Unknown]
  - Abdominal discomfort [Unknown]
  - Hepatomegaly [Unknown]
  - Metastases to liver [Unknown]
  - Hepatic mass [Unknown]
  - Hepatic pain [Unknown]
